FAERS Safety Report 5752464-9 (Version None)
Quarter: 2008Q2

REPORT INFORMATION
  Report Type: 
  Country: None (occurrence: None)
  Receive Date: 20080529
  Receipt Date: 20080428
  Transmission Date: 20081010
  Serious: No
  Sender: FDA-Public Use
  Company Number: US-BAYER-200811677BCC

PATIENT
  Age: 63 Year
  Sex: Female
  Weight: 86 kg

DRUGS (2)
  1. ALEVE (CAPLET) [Suspect]
     Indication: BACK PAIN
     Dosage: TOTAL DAILY DOSE: 440 MG  UNIT DOSE: 220 MG
     Route: 048
     Dates: start: 20080427
  2. PREVACID [Concomitant]

REACTIONS (2)
  - FATIGUE [None]
  - RESTLESS LEGS SYNDROME [None]
